FAERS Safety Report 6567105-0 (Version None)
Quarter: 2010Q1

REPORT INFORMATION
  Report Type: 
  Country: None (occurrence: None)
  Receive Date: 20100128
  Receipt Date: 20100119
  Transmission Date: 20100710
  Serious: Yes (Other)
  Sender: FDA-Public Use
  Company Number: 2010000256

PATIENT
  Age: 24 Year
  Sex: Male
  Weight: 104.3273 kg

DRUGS (4)
  1. TRISENOX [Suspect]
     Indication: ACUTE PROMYELOCYTIC LEUKAEMIA
     Dosage: 8.6786 MG (12.15 MG, 5 IN 1 WK), INTRAVENOUS DRIP; 10.1071 MG (14.15 MG, 5 IN 1 WK), INTRAVENOUS
     Route: 041
     Dates: start: 20091116
  2. IDARUBICIN HCL [Concomitant]
  3. TRETINOIN [Concomitant]
  4. COMPAZINE [Concomitant]

REACTIONS (3)
  - EJECTION FRACTION DECREASED [None]
  - OEDEMA [None]
  - WEIGHT INCREASED [None]
